FAERS Safety Report 17939966 (Version 1)
Quarter: 2020Q2

REPORT INFORMATION
  Report Type: Spontaneous
  Country: DE (occurrence: DE)
  Receive Date: 20200624
  Receipt Date: 20200624
  Transmission Date: 20200714
  Serious: Yes (Hospitalization)
  Sender: FDA-Public Use
  Company Number: DE-MYLANLABS-2020M1057623

PATIENT
  Age: 18 Year
  Sex: Female
  Weight: 46.1 kg

DRUGS (9)
  1. PANTOPRAZOL                        /01263201/ [Concomitant]
     Active Substance: PANTOPRAZOLE
     Dosage: 40 MILLIGRAM, QD(40 MG, 0-0-1-0)
  2. COLECALCIFEROL [Concomitant]
     Active Substance: CHOLECALCIFEROL
     Dosage: 500 IE, 1-0-0-0
  3. METAMIZOL                          /06276701/ [Concomitant]
     Active Substance: METAMIZOLE
     Dosage: 500 MG, 40-40-40-40, TROPFEN
  4. PREDNISOLONE. [Suspect]
     Active Substance: PREDNISOLONE
     Indication: PRODUCT USED FOR UNKNOWN INDICATION
     Dosage: 5 MG, 1-0-0-0
  5. AZATHIOPRINE. [Suspect]
     Active Substance: AZATHIOPRINE
     Indication: PRODUCT USED FOR UNKNOWN INDICATION
     Dosage: 150 MILLIGRAM, QD(150 MG, 1-0-0-0)
  6. TILIDINE                           /00205402/ [Concomitant]
     Dosage: (4|50 MG, 1-0-1-0) BID
  7. MAGALDRATE [Concomitant]
     Active Substance: MAGALDRATE
     Dosage: 1600 MILLIGRAM, TID(1600 MG, 1-1-1-0, BEUTEL)
  8. URSODEOXYCHOLIC ACID [Concomitant]
     Active Substance: URSODIOL
     Dosage: 250 MILLIGRAM(250 MG, 2-0-2-0)
  9. LOPERAMID [Concomitant]
     Active Substance: LOPERAMIDE
     Dosage: 2 MILLIGRAM, TID(2 MG, 1-1-1-0, SAFT   )

REACTIONS (6)
  - Pyrexia [Unknown]
  - Pain [Unknown]
  - Diarrhoea [Unknown]
  - Vomiting [Unknown]
  - Abdominal pain lower [Unknown]
  - Musculoskeletal pain [Unknown]
